FAERS Safety Report 23405255 (Version 1)
Quarter: 2024Q1

REPORT INFORMATION
  Report Type: Spontaneous
  Country: US (occurrence: US)
  Receive Date: 20240116
  Receipt Date: 20240116
  Transmission Date: 20240409
  Serious: Yes (Life-Threatening, Hospitalization, Other)
  Sender: FDA-Public Use
  Company Number: US-ABBVIE-5529916

PATIENT
  Age: 81 Year
  Sex: Female

DRUGS (8)
  1. CIPRO [Interacting]
     Active Substance: CIPROFLOXACIN HYDROCHLORIDE
     Indication: Antibiotic prophylaxis
     Dosage: 500 MG, BID
  2. AMIODARONE [Interacting]
     Active Substance: AMIODARONE
     Indication: Atrial fibrillation
  3. TOPROL XL [Interacting]
     Active Substance: METOPROLOL SUCCINATE
     Indication: Prophylactic chemotherapy
  4. TORSEMIDE [Interacting]
     Active Substance: TORSEMIDE
  5. POSACONAZOLE [Interacting]
     Active Substance: POSACONAZOLE
     Indication: Antifungal prophylaxis
  6. BENAZEPRIL [Interacting]
     Active Substance: BENAZEPRIL HYDROCHLORIDE
     Indication: Hypertension
  7. ACYCLOVIR [Interacting]
     Active Substance: ACYCLOVIR
     Indication: Antiviral prophylaxis
  8. VENETOCLAX [Interacting]
     Active Substance: VENETOCLAX
     Indication: Acute myeloid leukaemia

REACTIONS (9)
  - Hypomagnesaemia [Recovering/Resolving]
  - Electrocardiogram QT prolonged [Recovering/Resolving]
  - Acute kidney injury [Unknown]
  - Arrhythmia [Recovering/Resolving]
  - Hypokalaemia [Recovering/Resolving]
  - Drug interaction [Recovering/Resolving]
  - Syncope [Unknown]
  - Bradycardia [Recovering/Resolving]
  - Torsade de pointes [Recovering/Resolving]
